FAERS Safety Report 18218209 (Version 2)
Quarter: 2020Q3

REPORT INFORMATION
  Report Type: Spontaneous
  Country: CN (occurrence: CN)
  Receive Date: 20200901
  Receipt Date: 20200904
  Transmission Date: 20201103
  Serious: Yes (Other)
  Sender: FDA-Public Use
  Company Number: CN-PFIZER INC-2020335725

PATIENT
  Age: 18 Year
  Sex: Female
  Weight: 50 kg

DRUGS (5)
  1. METHOTREXATE. [Suspect]
     Active Substance: METHOTREXATE
     Dosage: 75 MG, 1X/DAY
     Route: 030
     Dates: start: 20200819, end: 20200819
  2. METHOTREXATE. [Suspect]
     Active Substance: METHOTREXATE
     Indication: ECTOPIC PREGNANCY
     Dosage: 75 MG, 1X/DAY
     Route: 030
     Dates: start: 20200815, end: 20200815
  3. HAN ZHU TING [Concomitant]
     Indication: ECTOPIC PREGNANCY
     Dosage: 100 MG, 2X/DAY
     Route: 048
     Dates: start: 20200814, end: 20200817
  4. METHOTREXATE. [Suspect]
     Active Substance: METHOTREXATE
     Dosage: 75 MG, 1X/DAY
     Route: 030
     Dates: start: 20200817, end: 20200817
  5. HU GAN [Concomitant]
     Indication: HEPATIC FUNCTION ABNORMAL
     Dosage: 1.440 G, 3X/DAY
     Route: 048
     Dates: start: 20200819, end: 20200827

REACTIONS (11)
  - Pruritus [Recovering/Resolving]
  - Hepatic function abnormal [Recovering/Resolving]
  - Alanine aminotransferase increased [Recovering/Resolving]
  - Off label use [Unknown]
  - Productive cough [Recovering/Resolving]
  - Rash [Recovering/Resolving]
  - Cough [Recovering/Resolving]
  - Discomfort [Recovering/Resolving]
  - Aspartate aminotransferase increased [Recovering/Resolving]
  - Upper respiratory tract infection [Recovering/Resolving]
  - Product use in unapproved indication [Unknown]

NARRATIVE: CASE EVENT DATE: 20200815
